FAERS Safety Report 6104311-3 (Version None)
Quarter: 2009Q1

REPORT INFORMATION
  Report Type: 
  Country: None (occurrence: None)
  Receive Date: 20090305
  Receipt Date: 20090223
  Transmission Date: 20090719
  Serious: Yes (Hospitalization)
  Sender: FDA-Public Use
  Company Number: ES-ELI_LILLY_AND_COMPANY-ES200903000230

PATIENT
  Age: 69 Year
  Sex: Female

DRUGS (10)
  1. FORTEO [Suspect]
     Indication: OSTEOPOROSIS
     Dosage: 20 UG, UNKNOWN
     Route: 058
     Dates: start: 20080604
  2. TROMALYT [Concomitant]
     Indication: THROMBOSIS
     Dates: end: 20091202
  3. DIGOXIN [Concomitant]
  4. IRON [Concomitant]
  5. SINTROM [Concomitant]
  6. ORFIDAL [Concomitant]
  7. PRAVASTATIN [Concomitant]
  8. SUTRIL [Concomitant]
     Dosage: UNK, UNK
     Dates: end: 20081202
  9. OMEPRAZOLE [Concomitant]
  10. PLAVIX [Concomitant]

REACTIONS (3)
  - ANAEMIA [None]
  - COLONIC POLYP [None]
  - HAEMORRHAGE [None]
